FAERS Safety Report 9560117 (Version 1)
Quarter: 2013Q3

REPORT INFORMATION
  Report Type: Spontaneous
  Country: US (occurrence: None)
  Receive Date: 20130909
  Receipt Date: 20130909
  Transmission Date: 20140515
  Serious: Yes (Hospitalization)
  Sender: FDA-Public Use
  Company Number: 380629

PATIENT
  Age: 54 Year
  Sex: Female

DRUGS (5)
  1. VICTOZA (LIRAGLUTIDE) SOLUTION FOR INJECTION, 6MG/ML [Suspect]
     Indication: TYPE 2 DIABETES MELLITUS
     Dosage: UNK, SUBCUTANEOUS
     Route: 058
     Dates: start: 201006, end: 201305
  2. ATENOLOL (ATENOLOL) [Concomitant]
  3. CLONIDINE (CLONIDINE) [Concomitant]
  4. GLUCOTROL (GLIPIZIDE) [Concomitant]
  5. INDAPAMIDE (INDAPAMIDE) [Concomitant]

REACTIONS (1)
  - Renal failure [None]
